FAERS Safety Report 6812576-5 (Version None)
Quarter: 2010Q3

REPORT INFORMATION
  Report Type: 
  Country: None (occurrence: None)
  Receive Date: 20100701
  Receipt Date: 20100623
  Transmission Date: 20110219
  Serious: Yes (Other)
  Sender: FDA-Public Use
  Company Number: DE-PFIZER INC-2010068380

PATIENT
  Age: 53 Year
  Sex: Male
  Weight: 118 kg

DRUGS (2)
  1. LYRICA [Suspect]
     Indication: NEURITIS
     Dosage: UP TO 450 MG DAILY
     Route: 048
     Dates: start: 20090101
  2. CORTISONE [Concomitant]
     Indication: NEURITIS
     Dosage: 20 MG,AND DECREASING
     Route: 048
     Dates: start: 20100518, end: 20100525

REACTIONS (1)
  - HAEMATOCHEZIA [None]
